FAERS Safety Report 6904976-X (Version None)
Quarter: 2010Q3

REPORT INFORMATION
  Report Type: 
  Country: None (occurrence: None)
  Receive Date: 20100804
  Receipt Date: 20090813
  Transmission Date: 20110219
  Serious: Yes (Other)
  Sender: FDA-Public Use
  Company Number: US-PFIZER INC-2009233607

PATIENT
  Sex: Male
  Weight: 146.3 kg

DRUGS (13)
  1. LYRICA [Suspect]
     Indication: FIBROMYALGIA
     Dosage: 25 MG, 2X/DAY
     Route: 048
  2. NEURONTIN [Suspect]
     Dosage: UNK
     Dates: start: 20050101
  3. PROZAC [Suspect]
     Dosage: 40 MG, 1X/DAY
  4. LEVOTHYROXINE SODIUM [Concomitant]
     Dosage: 25 UG, UNK
  5. AMLODIPINE BESILATE [Concomitant]
     Dosage: UNK
  6. POTASSIUM [Concomitant]
     Dosage: UNK
  7. BENAZEPRIL [Concomitant]
     Dosage: UNK
  8. METFORMIN HYDROCHLORIDE [Concomitant]
     Dosage: UNK
  9. GLYBURIDE [Concomitant]
     Dosage: UNK
  10. METOPROLOL [Concomitant]
     Dosage: 25 MG, 1X/DAY
  11. HYDROCODONE BITARTRATE [Concomitant]
     Indication: ARTHRALGIA
     Dosage: 5/500 MG
  12. ACTOS [Concomitant]
     Dosage: 15 MG, UNK
  13. MULTI-VITAMINS [Concomitant]
     Dosage: UNK

REACTIONS (5)
  - BLOOD GLUCOSE ABNORMAL [None]
  - DRUG INEFFECTIVE [None]
  - INCORRECT DOSE ADMINISTERED [None]
  - SOMNOLENCE [None]
  - SUICIDAL IDEATION [None]
